FAERS Safety Report 6934863-2 (Version None)
Quarter: 2010Q3

REPORT INFORMATION
  Report Type: 
  Country: None (occurrence: None)
  Receive Date: 20100820
  Receipt Date: 20100806
  Transmission Date: 20110219
  Serious: Yes (Death)
  Sender: FDA-Public Use
  Company Number: GXKR2010SI08936

PATIENT
  Age: 80 Year
  Sex: Female

DRUGS (6)
  1. LENDACIN (NGX) [Suspect]
     Indication: ANTIBIOTIC THERAPY
     Dosage: 2 G/24 H
     Route: 042
  2. GARAMYCIN [Concomitant]
     Indication: ANTIBIOTIC THERAPY
  3. CIPRINOL [Concomitant]
     Indication: ANTIBIOTIC THERAPY
     Route: 065
  4. FENTANYL CITRATE [Concomitant]
  5. TRAMAL [Concomitant]
  6. DULCOLAX [Concomitant]

REACTIONS (1)
  - RENAL FAILURE ACUTE [None]
